FAERS Safety Report 21417611 (Version 1)
Quarter: 2022Q4

REPORT INFORMATION
  Report Type: Spontaneous
  Country: US (occurrence: None)
  Receive Date: 20221005
  Receipt Date: 20221005
  Transmission Date: 20230112
  Serious: Yes (Hospitalization)
  Sender: FDA-Public Use
  Company Number: None

PATIENT
  Age: 60 Year
  Sex: Male
  Weight: 84.41 kg

DRUGS (18)
  1. WELIREG [Suspect]
     Active Substance: BELZUTIFAN
     Indication: Renal cancer
     Dosage: FREQUENCY : DAILY;?
     Route: 048
     Dates: start: 202209
  2. ACETAMINOPHEN\CODEINE PHOSPHATE [Concomitant]
     Active Substance: ACETAMINOPHEN\CODEINE PHOSPHATE
  3. CALCIUM CARBONATE + VITAMIN D [Concomitant]
  4. ELIQUIS [Concomitant]
     Active Substance: APIXABAN
  5. ENOXAPARIN [Concomitant]
     Active Substance: ENOXAPARIN
  6. GABAPENTIN [Concomitant]
     Active Substance: GABAPENTIN
  7. KEPPRA [Concomitant]
     Active Substance: LEVETIRACETAM
  8. LIPITOR [Concomitant]
     Active Substance: ATORVASTATIN CALCIUM
  9. LORAZEPAM [Concomitant]
     Active Substance: LORAZEPAM
  10. MAGOX [Concomitant]
  11. METOCLOPRAMIDE [Concomitant]
     Active Substance: METOCLOPRAMIDE
  12. METOPROLOL [Concomitant]
     Active Substance: METOPROLOL
  13. NARCAN [Concomitant]
     Active Substance: NALOXONE HYDROCHLORIDE
  14. NIFEDIPINE [Concomitant]
     Active Substance: NIFEDIPINE
  15. NORCO [Concomitant]
     Active Substance: ACETAMINOPHEN\HYDROCODONE BITARTRATE
  16. SENOKOT [Concomitant]
     Active Substance: SENNOSIDES
  17. TYLENOL [Concomitant]
     Active Substance: ACETAMINOPHEN
  18. VITMAIN D3 [Concomitant]

REACTIONS (1)
  - Hospitalisation [None]
